FAERS Safety Report 10736922 (Version 1)
Quarter: 2015Q1

REPORT INFORMATION
  Report Type: Spontaneous
  Country: TR (occurrence: None)
  Receive Date: 20150122
  Receipt Date: 20150122
  Transmission Date: 20150721
  Serious: Yes (Other)
  Sender: FDA-Public Use
  Company Number: 2015JUB00010

PATIENT
  Age: 75 Year
  Sex: Male

DRUGS (7)
  1. AZATHIOPRINE (AZATHIOPRINE) [Concomitant]
     Active Substance: AZATHIOPRINE
  2. METFORMIN [Concomitant]
     Active Substance: METFORMIN HYDROCHLORIDE
  3. GLIBENCLAMIDE (GLIBENCLAMIDE) [Concomitant]
     Active Substance: GLYBURIDE
  4. CARBAMAZEPINE. [Suspect]
     Active Substance: CARBAMAZEPINE
     Route: 048
  5. ACARBOSE (ACARBOSE) [Concomitant]
  6. PREDNISOLONE (PREDNISOLONE) [Concomitant]
     Active Substance: PREDNISOLONE
  7. RANITIDINE [Concomitant]
     Active Substance: RANITIDINE\RANITIDINE HYDROCHLORIDE

REACTIONS (2)
  - Drug eruption [None]
  - Pemphigoid [None]
